FAERS Safety Report 22211885 (Version 3)
Quarter: 2024Q2

REPORT INFORMATION
  Report Type: Spontaneous
  Country: GR (occurrence: GR)
  Receive Date: 20230414
  Receipt Date: 20240403
  Transmission Date: 20240715
  Serious: Yes (Life-Threatening, Hospitalization, Other)
  Sender: FDA-Public Use
  Company Number: GR-UCBSA-2023017456

PATIENT
  Age: 37 Year
  Sex: Male

DRUGS (7)
  1. LEVETIRACETAM [Suspect]
     Active Substance: LEVETIRACETAM
     Indication: Seizure
     Dosage: UNK
     Route: 042
     Dates: start: 200501
  2. PREGABALIN [Suspect]
     Active Substance: PREGABALIN
     Indication: Seizure
     Dosage: UNK
     Dates: start: 200602
  3. LEVETIRACETAM [Suspect]
     Active Substance: LEVETIRACETAM
     Indication: Seizure
     Dosage: 1000 MG, 2X/DAY
     Route: 048
     Dates: start: 200501
  4. LAMOTRIGINE [Suspect]
     Active Substance: LAMOTRIGINE
     Indication: Seizure
     Dosage: 200 MG, 1X/DAY
     Dates: start: 200510
  5. TOPIRAMATE [Suspect]
     Active Substance: TOPIRAMATE
     Indication: Seizure
     Dosage: UNK
     Dates: start: 200507
  6. VALPROIC ACID [Suspect]
     Active Substance: VALPROIC ACID
     Indication: Seizure
     Dosage: UNK
     Dates: start: 200602
  7. CARBAMAZEPINE [Suspect]
     Active Substance: CARBAMAZEPINE
     Indication: Seizure
     Dosage: UNK
     Dates: start: 200409

REACTIONS (8)
  - Anaphylactic shock [Unknown]
  - Seizure [Unknown]
  - Fall [Unknown]
  - Gait disturbance [Unknown]
  - Agitation [Unknown]
  - Aggression [Unknown]
  - Multiple-drug resistance [Unknown]
  - Weight decreased [Unknown]

NARRATIVE: CASE EVENT DATE: 20050101
